FAERS Safety Report 9606173 (Version 1)
Quarter: 2013Q4

REPORT INFORMATION
  Report Type: Spontaneous
  Country: US (occurrence: US)
  Receive Date: 20131008
  Receipt Date: 20131008
  Transmission Date: 20140711
  Serious: No
  Sender: FDA-Public Use
  Company Number: US-AMGEN-USASP2013043968

PATIENT
  Age: 78 Year
  Sex: Female

DRUGS (9)
  1. PROLIA [Suspect]
     Indication: OSTEOPOROSIS POSTMENOPAUSAL
     Dosage: UNK
     Dates: start: 20130404
  2. CALCIUM [Concomitant]
     Dosage: 600 MG, QD
  3. ATENOLOL [Concomitant]
     Dosage: 50 MG, QD
  4. VITAMIN D2 [Concomitant]
     Dosage: 50000 UNIT, QWK
  5. BENAZEPRIL HYDROCHLORIDE [Concomitant]
     Dosage: 40 MG, QD
  6. FELODIPINE [Concomitant]
     Dosage: 10 MG, QD
  7. VITAMIN B12                        /00056201/ [Concomitant]
     Dosage: 1000 UNIT, QD
  8. VITAMIN D3 [Concomitant]
     Dosage: 400 UNIT, QD
  9. MULTIVITAMIN                       /00097801/ [Concomitant]

REACTIONS (3)
  - Muscle spasms [Unknown]
  - Arthralgia [Unknown]
  - Pain in extremity [Unknown]
